FAERS Safety Report 18339214 (Version 1)
Quarter: 2020Q4

REPORT INFORMATION
  Report Type: Spontaneous
  Country: US (occurrence: US)
  Receive Date: 20201002
  Receipt Date: 20201002
  Transmission Date: 20210113
  Serious: No
  Sender: FDA-Public Use
  Company Number: None

PATIENT
  Sex: Female
  Weight: 47.6 kg

DRUGS (19)
  1. BENEFIBER [Concomitant]
     Active Substance: STARCH, WHEAT
  2. CENTRUM MULTIGUMMIES [Concomitant]
     Active Substance: MINERALS\VITAMINS
  3. CAPECITABINE. [Suspect]
     Active Substance: CAPECITABINE
     Indication: COLON CANCER
     Route: 048
     Dates: start: 20200724, end: 20201002
  4. ACETAMINOPHEN EXTRA STRENGTH [Concomitant]
     Active Substance: ACETAMINOPHEN
  5. ASPIRIN 81 [Concomitant]
     Active Substance: ASPIRIN
  6. CAPECITABINE. [Suspect]
     Active Substance: CAPECITABINE
     Indication: COLON CANCER
     Route: 048
     Dates: start: 20200724, end: 20201002
  7. CELEBREX [Concomitant]
     Active Substance: CELECOXIB
  8. TUMS [Concomitant]
     Active Substance: CALCIUM CARBONATE
  9. VITAMIN B12 [Concomitant]
     Active Substance: CYANOCOBALAMIN
  10. VITAMIN D (CHOLECALCIFEROL) [Concomitant]
     Active Substance: CHOLECALCIFEROL
  11. OXYCODONE HYDROCHLORIDE. [Concomitant]
     Active Substance: OXYCODONE HYDROCHLORIDE
  12. ATORVASTATIN CALCIUM. [Concomitant]
     Active Substance: ATORVASTATIN CALCIUM
  13. DOCUSATE SODIUM. [Concomitant]
     Active Substance: DOCUSATE SODIUM
  14. RANITIDINE HCL [Concomitant]
     Active Substance: RANITIDINE HYDROCHLORIDE
  15. WELLBUTRIN XL [Concomitant]
     Active Substance: BUPROPION HYDROCHLORIDE
  16. CLONAZEPAM. [Concomitant]
     Active Substance: CLONAZEPAM
  17. LIDODERM [Concomitant]
     Active Substance: LIDOCAINE
  18. PROCHLORPERAZINE MALEATE. [Concomitant]
     Active Substance: PROCHLORPERAZINE MALEATE
  19. SENOKOT [Concomitant]
     Active Substance: SENNOSIDES

REACTIONS (1)
  - Hospice care [None]
